FAERS Safety Report 14389841 (Version 1)
Quarter: 2018Q1

REPORT INFORMATION
  Report Type: Report from Study
  Country: CA (occurrence: CA)
  Receive Date: 20180115
  Receipt Date: 20180115
  Transmission Date: 20180509
  Serious: Yes (Death, Hospitalization, Other)
  Sender: FDA-Public Use
  Company Number: PHHY2012CA029368

PATIENT
  Age: 57 Year
  Sex: Male

DRUGS (4)
  1. LUGOL [Concomitant]
     Active Substance: IODINE\POTASSIUM IODIDE
     Indication: PRODUCT USED FOR UNKNOWN INDICATION
     Dosage: 3 GTT, TID
     Route: 065
  2. SANDOSTATIN LAR DEPOT [Suspect]
     Active Substance: OCTREOTIDE ACETATE
     Dosage: 30 MG, QMO
     Route: 030
  3. SANDOSTATIN LAR DEPOT [Suspect]
     Active Substance: OCTREOTIDE ACETATE
     Indication: CARCINOID TUMOUR
     Dosage: 20 MG, QMO
     Route: 030
     Dates: start: 20120229
  4. SANDOSTATIN LAR DEPOT [Suspect]
     Active Substance: OCTREOTIDE ACETATE
     Dosage: 40 MG, QMO
     Route: 030

REACTIONS (20)
  - Tongue coated [Unknown]
  - Injection site pain [Unknown]
  - Diarrhoea [Unknown]
  - Oral disorder [Unknown]
  - Oedema peripheral [Unknown]
  - Weight decreased [Unknown]
  - Myocardial infarction [Unknown]
  - Blood pressure increased [Unknown]
  - Therapy non-responder [Unknown]
  - Intestinal obstruction [Unknown]
  - Metastases to abdominal cavity [Unknown]
  - Blood glucose increased [Unknown]
  - Pain [Unknown]
  - Malignant neoplasm progression [Unknown]
  - Cachexia [Unknown]
  - Pain in extremity [Unknown]
  - Body temperature decreased [Unknown]
  - Abdominal pain [Unknown]
  - Death [Fatal]
  - Incision site haematoma [Unknown]

NARRATIVE: CASE EVENT DATE: 20120330
